FAERS Safety Report 8586200-8 (Version None)
Quarter: 2012Q3

REPORT INFORMATION
  Report Type: 
  Country: None (occurrence: None)
  Receive Date: 20120810
  Receipt Date: 20120730
  Transmission Date: 20120928
  Serious: Yes (Other)
  Sender: FDA-Public Use
  Company Number: SE-GLAXOSMITHKLINE-B0821765A

PATIENT
  Age: 62 Year
  Sex: Female

DRUGS (1)
  1. LAPATINIB [Suspect]
     Indication: BREAST CANCER METASTATIC
     Route: 065

REACTIONS (10)
  - DISEASE PROGRESSION [None]
  - VOMITING [None]
  - FATIGUE [None]
  - RASH [None]
  - STOMATITIS [None]
  - TREATMENT NONCOMPLIANCE [None]
  - DRUG INEFFECTIVE [None]
  - DIARRHOEA [None]
  - PAIN IN EXTREMITY [None]
  - HEPATOTOXICITY [None]
